FAERS Safety Report 7174112-6 (Version None)
Quarter: 2010Q4

REPORT INFORMATION
  Report Type: 
  Country: None (occurrence: None)
  Receive Date: 20101202
  Receipt Date: 20101116
  Transmission Date: 20110411
  Serious: Yes (Other)
  Sender: FDA-Public Use
  Company Number: B0686116A

PATIENT
  Age: 24 Year
  Sex: Female

DRUGS (2)
  1. SALBUTAMOL SULPHATE (FORMULATION UNKNOWN) (GENERIC) (ALBUTEROL SULFATE [Suspect]
     Indication: STATUS ASTHMATICUS
     Dosage: .083% DOSE/ NEBULISER
  2. IPRATROPIUM BROMIDE [Suspect]
     Indication: STATUS ASTHMATICUS
     Dosage: .02% DOSE/ NEBULISER

REACTIONS (4)
  - BREATH SOUNDS ABNORMAL [None]
  - DEVICE MALFUNCTION [None]
  - DEVICE OCCLUSION [None]
  - PULMONARY FUNCTION TEST DECREASED [None]
